FAERS Safety Report 13976937 (Version 1)
Quarter: 2017Q3

REPORT INFORMATION
  Report Type: Spontaneous
  Country: US (occurrence: US)
  Receive Date: 20170915
  Receipt Date: 20170915
  Transmission Date: 20171128
  Serious: No
  Sender: FDA-Public Use
  Company Number: US-ROCHE-715029

PATIENT

DRUGS (3)
  1. HERCEPTIN [Suspect]
     Active Substance: TRASTUZUMAB
     Indication: PRODUCT USED FOR UNKNOWN INDICATION
     Dosage: LOADING DOSE ON DECEMBER 18.
     Route: 065
  2. HERCEPTIN [Suspect]
     Active Substance: TRASTUZUMAB
     Dosage: SECOND TREATMENT ON 29 JANUARY.
     Route: 065
  3. TAXOL [Suspect]
     Active Substance: PACLITAXEL
     Indication: PRODUCT USED FOR UNKNOWN INDICATION
     Dosage: LAST TX ON 30 OCTOBER 2008
     Route: 065

REACTIONS (8)
  - Onycholysis [Unknown]
  - Urticaria [Unknown]
  - Nail disorder [Unknown]
  - Onychalgia [Unknown]
  - Fatigue [Unknown]
  - Nail growth abnormal [Unknown]
  - Hyperaesthesia [Unknown]
  - Rhinorrhoea [Unknown]
